FAERS Safety Report 8539262-8 (Version None)
Quarter: 2012Q3

REPORT INFORMATION
  Report Type: 
  Country: None (occurrence: None)
  Receive Date: 20120726
  Receipt Date: 20120718
  Transmission Date: 20120928
  Serious: Yes (Other)
  Sender: FDA-Public Use
  Company Number: GB-JNJFOC-20120704469

PATIENT
  Sex: Male

DRUGS (2)
  1. DAKTARIN POWDER [Suspect]
     Route: 061
  2. DAKTARIN POWDER [Suspect]
     Indication: PRODUCT USED FOR UNKNOWN INDICATION
     Route: 061

REACTIONS (3)
  - OEDEMA PERIPHERAL [None]
  - ERYTHEMA [None]
  - BLISTER [None]
